FAERS Safety Report 7889967-7 (Version None)
Quarter: 2011Q4

REPORT INFORMATION
  Report Type: 
  Country: None (occurrence: None)
  Receive Date: 20111103
  Receipt Date: 20111025
  Transmission Date: 20120403
  Serious: Yes (Hospitalization)
  Sender: FDA-Public Use
  Company Number: PHHO2011DE16896

PATIENT
  Sex: Female
  Weight: 67 kg

DRUGS (6)
  1. DOCETAXEL [Suspect]
     Dosage: UNK
     Route: 042
     Dates: start: 20110927
  2. METOCLOPRAMIDE [Concomitant]
     Indication: NAUSEA
     Dosage: UNK
     Route: 048
     Dates: start: 20110927, end: 20111004
  3. DOCETAXEL [Suspect]
     Dosage: UNK
     Route: 042
     Dates: start: 20111018
  4. DOCETAXEL [Suspect]
     Indication: BREAST CANCER
     Dosage: 132 MG, UNK
     Route: 042
     Dates: start: 20110906, end: 20110927
  5. CAPECITABINE [Suspect]
     Indication: BREAST CANCER
     Dosage: 1500 MG, BID
     Route: 048
     Dates: start: 20110906, end: 20110920
  6. NO TREATMENT RECEIVED [Suspect]
     Indication: BREAST CANCER
     Dosage: UNK

REACTIONS (5)
  - NEUTROPENIA [None]
  - WOUND DEHISCENCE [None]
  - WOUND COMPLICATION [None]
  - C-REACTIVE PROTEIN INCREASED [None]
  - IMPAIRED HEALING [None]
